FAERS Safety Report 15905830 (Version 1)
Quarter: 2019Q1

REPORT INFORMATION
  Report Type: Spontaneous
  Country: US (occurrence: US)
  Receive Date: 20190110
  Receipt Date: 20190110
  Transmission Date: 20190417
  Serious: No
  Sender: FDA-Public Use
  Company Number: None

PATIENT
  Age: 70 Year
  Sex: Female

DRUGS (1)
  1. IMATINIB TAB 400MG  (X30) [Suspect]
     Active Substance: IMATINIB
     Route: 048
     Dates: start: 201712

REACTIONS (3)
  - Glaucoma [None]
  - Skin discolouration [None]
  - Cataract operation [None]

NARRATIVE: CASE EVENT DATE: 20190103
